FAERS Safety Report 7770424-3 (Version None)
Quarter: 2011Q3

REPORT INFORMATION
  Report Type: 
  Country: None (occurrence: None)
  Receive Date: 20110922
  Receipt Date: 20100831
  Transmission Date: 20111222
  Serious: Yes (Life-Threatening)
  Sender: FDA-Public Use
  Company Number: US-ASTRAZENECA-2010SE41051

PATIENT
  Age: 73 Year
  Sex: Female
  Weight: 113.4 kg

DRUGS (6)
  1. TOPROL-XL [Concomitant]
     Route: 048
  2. SEROQUEL [Suspect]
     Route: 048
  3. EXALON PATCH [Concomitant]
  4. OTC POTASSUM FROM WALMART [Concomitant]
  5. SEROQUEL [Suspect]
     Indication: SLEEP DISORDER
     Route: 048
  6. LASIX [Concomitant]

REACTIONS (1)
  - ANAPHYLACTIC REACTION [None]
